FAERS Safety Report 8991012 (Version 1)
Quarter: 2012Q4

REPORT INFORMATION
  Report Type: 
  Country: JP (occurrence: None)
  Receive Date: 20121221
  Receipt Date: 20121221
  Transmission Date: 20130627
  Serious: Yes (Death)
  Sender: FDA-Public Use
  Company Number: PNIS20120038

PATIENT
  Age: 9 Year
  Sex: Male

DRUGS (8)
  1. PREDNISOLONE [Suspect]
     Indication: PRECURSOR B-LYMPHOBLASTIC LYMPHOMA
     Dosage: 60 mg/sq.meter, EVERY DAY FOR 5 WEEKS, Oral
     Route: 048
  2. VINCRISTINE [Suspect]
     Indication: PRECURSOR B-LYMPHOBLASTIC LYMPHOMA
     Dosage: 1.5 mg/sq.meter, FOUR DOSES, Unknown
  3. CYCLOPHOSPHAMIDE [Suspect]
     Indication: PRECURSOR B-LYMPHOBLASTIC LYMPHOMA
     Dosage: 1.0 g/sq.meter, ONE DOSE, Unknown
  4. DAUNORUBICIN [Suspect]
     Indication: PRECURSOR B-LYMPHOBLASTIC LYMPHOMA
     Dosage: 40 mg/sq.meter, THREE DOSES, Unknown
  5. L-ASPARAGINASE [Suspect]
     Indication: PRECURSOR B-LYMPHOBLASTIC LYMPHOMA
     Dosage: 6000 U/sq.meter, NINE DOSES, Unknown
  6. METHOTREXATE [Suspect]
     Indication: PRECURSOR B-LYMPHOBLASTIC LYMPHOMA
     Dosage: 12.5 mg, THREE DOSES, Unknown
  7. CYTARABINE [Suspect]
     Indication: PRECURSOR B-LYMPHOBLASTIC LYMPHOMA
     Dosage: 25 mg, THREE DOSES, Unknown
  8. HYDROCORTISONE [Suspect]
     Indication: PRECURSOR B-LYMPHOBLASTIC LYMPHOMA
     Dosage: 25 mg, THREE DOSES, Unknown

REACTIONS (8)
  - Venoocclusive liver disease [None]
  - Neuropathy peripheral [None]
  - Refractoriness to platelet transfusion [None]
  - Thrombocytopenia [None]
  - Bradycardia [None]
  - Pupillary reflex impaired [None]
  - Haemorrhage intracranial [None]
  - Brain herniation [None]
